FAERS Safety Report 14133203 (Version 2)
Quarter: 2018Q1

REPORT INFORMATION
  Report Type: Spontaneous
  Country: IT (occurrence: IT)
  Receive Date: 20171027
  Receipt Date: 20180216
  Transmission Date: 20180508
  Serious: Yes (Hospitalization)
  Sender: FDA-Public Use
  Company Number: IT-ACCORD-060244

PATIENT
  Age: 73 Year
  Sex: Male

DRUGS (7)
  1. PANTORC [Concomitant]
     Active Substance: PANTOPRAZOLE SODIUM
     Indication: PRODUCT USED FOR UNKNOWN INDICATION
     Dosage: STRENGTH: 20 MG
  2. ANAFRANIL [Interacting]
     Active Substance: CLOMIPRAMINE HYDROCHLORIDE
     Indication: DEPRESSION
     Dosage: STRENGTH: 10 MG, 1 DF DAILY
     Route: 048
  3. FENTANYL. [Interacting]
     Active Substance: FENTANYL
     Indication: PAIN
     Dosage: 100 UG AS NECESSARY
     Route: 003
  4. QUETIAPINE. [Suspect]
     Active Substance: QUETIAPINE
     Indication: PSYCHOTIC DISORDER
     Route: 048
  5. ENALAPRIL [Concomitant]
     Active Substance: ENALAPRIL
     Indication: PRODUCT USED FOR UNKNOWN INDICATION
  6. CARVEDILOL. [Interacting]
     Active Substance: CARVEDILOL
     Indication: HYPERTENSION
     Route: 048
  7. LEVOSULPIRIDE [Concomitant]
     Active Substance: LEVOSULPIRIDE
     Indication: PRODUCT USED FOR UNKNOWN INDICATION

REACTIONS (6)
  - Sopor [Unknown]
  - Drug interaction [Unknown]
  - Hypotension [Unknown]
  - Respiratory failure [Unknown]
  - Tremor [Unknown]
  - Hypercapnia [Unknown]

NARRATIVE: CASE EVENT DATE: 20171009
